FAERS Safety Report 10244666 (Version 2)
Quarter: 2014Q3

REPORT INFORMATION
  Report Type: Report from Study
  Country: IT (occurrence: IT)
  Receive Date: 20140618
  Receipt Date: 20140817
  Transmission Date: 20150326
  Serious: Yes (Hospitalization)
  Sender: FDA-Public Use
  Company Number: PHHY2014IT073339

PATIENT
  Age: 48 Year
  Sex: Male

DRUGS (2)
  1. RIBAVIRIN. [Suspect]
     Active Substance: RIBAVIRIN
     Indication: CHRONIC HEPATITIS C
     Dosage: 600 MG, QD
     Route: 048
     Dates: start: 20130930, end: 20140321
  2. DARILIN [Concomitant]
     Dosage: 900 MG, UNK
     Route: 048
     Dates: start: 20130701, end: 20140208

REACTIONS (5)
  - Leukopenia [Recovering/Resolving]
  - Anaemia [Recovering/Resolving]
  - Malaise [Recovering/Resolving]
  - Neutropenia [Recovering/Resolving]
  - Blood creatinine increased [Recovering/Resolving]

NARRATIVE: CASE EVENT DATE: 20140208
